FAERS Safety Report 11201191 (Version 1)
Quarter: 2015Q2

REPORT INFORMATION
  Report Type: Report from Study
  Country: FR (occurrence: FR)
  Receive Date: 20150619
  Receipt Date: 20150619
  Transmission Date: 20150821
  Serious: Yes (Other)
  Sender: FDA-Public Use
  Company Number: PHHY2014FR079893

PATIENT
  Age: 66 Year
  Sex: Female

DRUGS (4)
  1. LDK378 [Suspect]
     Active Substance: CERITINIB
     Dosage: 4 DF (150 MG), DAILY
     Route: 065
     Dates: start: 20140422, end: 20140512
  2. LDK378 [Suspect]
     Active Substance: CERITINIB
     Indication: NON-SMALL CELL LUNG CANCER METASTATIC
     Dosage: 5 DF (150 MG), DAILY
     Route: 065
     Dates: start: 20140416, end: 20140420
  3. LDK378 [Suspect]
     Active Substance: CERITINIB
     Dosage: 3 DF (150 MG), DAILY
     Route: 065
     Dates: start: 20140512
  4. LDK378 [Suspect]
     Active Substance: CERITINIB
     Dosage: 450 MG (3 DFX 150 MG), DAILY
     Route: 065
     Dates: start: 20140630, end: 20141219

REACTIONS (15)
  - Gilbert^s syndrome [Unknown]
  - Non-small cell lung cancer metastatic [Unknown]
  - Nausea [Recovered/Resolved]
  - Hyperbilirubinaemia [Unknown]
  - Vomiting [Not Recovered/Not Resolved]
  - Neutropenia [Not Recovered/Not Resolved]
  - Vomiting [Recovered/Resolved]
  - Diarrhoea [Recovered/Resolved]
  - Weight decreased [Recovered/Resolved]
  - Blood bilirubin unconjugated increased [Not Recovered/Not Resolved]
  - Diarrhoea [Recovered/Resolved]
  - Malignant neoplasm progression [Unknown]
  - Abdominal pain [Recovered/Resolved]
  - Blood alkaline phosphatase increased [Recovered/Resolved]
  - Fatigue [Unknown]

NARRATIVE: CASE EVENT DATE: 20140420
